FAERS Safety Report 10076272 (Version 2)
Quarter: 2014Q2

REPORT INFORMATION
  Report Type: Spontaneous
  Country: US (occurrence: US)
  Receive Date: 20140414
  Receipt Date: 20140417
  Transmission Date: 20141212
  Serious: Yes (Death)
  Sender: FDA-Public Use
  Company Number: US-SA-2014SA045023

PATIENT
  Age: 34 Year
  Sex: Male

DRUGS (1)
  1. AMBIEN [Suspect]
     Indication: SLEEP DISORDER
     Route: 065

REACTIONS (15)
  - Completed suicide [Fatal]
  - Homicide [Unknown]
  - Fibromyalgia [Unknown]
  - Pain [Unknown]
  - Mobility decreased [Unknown]
  - Fatigue [Unknown]
  - Irritable bowel syndrome [Unknown]
  - Depression [Unknown]
  - Anhedonia [Unknown]
  - Panic attack [Unknown]
  - Anxiety [Unknown]
  - Fear [Unknown]
  - Impulse-control disorder [Unknown]
  - Violence-related symptom [Unknown]
  - Headache [Unknown]
